FAERS Safety Report 5741796-6 (Version None)
Quarter: 2008Q2

REPORT INFORMATION
  Report Type: 
  Country: None (occurrence: None)
  Receive Date: 20080515
  Receipt Date: 20080508
  Transmission Date: 20081010
  Serious: Yes (Hospitalization)
  Sender: FDA-Public Use
  Company Number: 2008BI000375

PATIENT
  Age: 64 Year
  Sex: Female

DRUGS (1)
  1. TYSABRI [Suspect]
     Indication: MULTIPLE SCLEROSIS
     Dosage: 300 MG; QM; IV
     Route: 042
     Dates: start: 20061116, end: 20071201

REACTIONS (5)
  - BRONCHITIS [None]
  - LOBAR PNEUMONIA [None]
  - MYCOBACTERIUM AVIUM COMPLEX INFECTION [None]
  - OPPORTUNISTIC INFECTION [None]
  - PLEURAL EFFUSION [None]
